FAERS Safety Report 7326363-5 (Version None)
Quarter: 2011Q1

REPORT INFORMATION
  Report Type: 
  Country: None (occurrence: None)
  Receive Date: 20110302
  Receipt Date: 20110223
  Transmission Date: 20110831
  Serious: Yes (Death)
  Sender: FDA-Public Use
  Company Number: FR-CELGENEUS-056-C5013-11022969

PATIENT
  Sex: Male
  Weight: 82 kg

DRUGS (8)
  1. ZOMETA [Concomitant]
     Route: 065
  2. CC-5013 [Suspect]
     Indication: PROSTATE CANCER
     Dosage: 25 MILLIGRAM
     Route: 048
     Dates: start: 20110211
  3. ATACAND [Concomitant]
     Indication: HYPERTENSION
     Route: 065
  4. CALCIT VIT D [Concomitant]
     Route: 065
  5. ZOLADEX [Concomitant]
     Route: 065
  6. PREDNISONE [Suspect]
     Indication: PROSTATE CANCER
     Dosage: 5 MILLIGRAM
     Route: 065
     Dates: start: 20110211
  7. VITAMINE K ANTAGONIST [Concomitant]
     Route: 065
  8. DOCETAXEL [Suspect]
     Indication: PROSTATE CANCER
     Dosage: 130 MILLIGRAM
     Route: 065
     Dates: start: 20110211

REACTIONS (33)
  - ACUTE ABDOMEN [None]
  - TACHYCARDIA [None]
  - WHEEZING [None]
  - CELL DEATH [None]
  - LEUKOPENIA [None]
  - VOMITING [None]
  - ANURIA [None]
  - NEUTROPENIA [None]
  - INTERNATIONAL NORMALISED RATIO INCREASED [None]
  - GASTROINTESTINAL NECROSIS [None]
  - SEPTIC SHOCK [None]
  - MULTI-ORGAN FAILURE [None]
  - RALES [None]
  - CARDIOMEGALY [None]
  - RENAL IMPAIRMENT [None]
  - METABOLIC ACIDOSIS [None]
  - HYPOXIA [None]
  - BRADYCARDIA [None]
  - HYPOVOLAEMIA [None]
  - PAIN IN EXTREMITY [None]
  - LUNG DISORDER [None]
  - FATIGUE [None]
  - HAEMOGLOBIN DECREASED [None]
  - THROMBOCYTOPENIA [None]
  - INTESTINAL INFARCTION [None]
  - TACHYPNOEA [None]
  - BLOOD LACTIC ACID INCREASED [None]
  - RHABDOMYOLYSIS [None]
  - INFLAMMATION [None]
  - DISSEMINATED INTRAVASCULAR COAGULATION [None]
  - CARDIO-RESPIRATORY ARREST [None]
  - DIALYSIS [None]
  - BLOOD FIBRINOGEN DECREASED [None]
